FAERS Safety Report 4745691-0 (Version None)
Quarter: 2005Q3

REPORT INFORMATION
  Report Type: 
  Country: None (occurrence: None)
  Receive Date: 20050811
  Receipt Date: 20050802
  Transmission Date: 20060218
  Serious: Yes (Death)
  Sender: FDA-Public Use
  Company Number: 2005100692

PATIENT
  Age: 23 Year
  Sex: Male

DRUGS (1)
  1. ZYVOX [Suspect]
     Indication: STAPHYLOCOCCAL BACTERAEMIA
     Dosage: 1200 MG (600 MG, 2 IN 1 D), INTRAVENOUS
     Route: 042
     Dates: start: 20050709, end: 20050713

REACTIONS (5)
  - COMPLICATIONS OF TRANSPLANTED LIVER [None]
  - CONDITION AGGRAVATED [None]
  - DRUG INTERACTION [None]
  - HEPATIC CIRRHOSIS [None]
  - LACTIC ACIDOSIS [None]
